FAERS Safety Report 9803766 (Version 1)
Quarter: 2014Q1

REPORT INFORMATION
  Report Type: Report from Study
  Country: US (occurrence: US)
  Receive Date: 20140108
  Receipt Date: 20140108
  Transmission Date: 20141002
  Serious: Yes (Other)
  Sender: FDA-Public Use
  Company Number: US-ROCHE-1324586

PATIENT
  Sex: Male

DRUGS (7)
  1. LUCENTIS [Suspect]
     Indication: RETINAL VEIN OCCLUSION
     Dosage: OS
     Route: 050
     Dates: start: 20110916
  2. LUCENTIS [Suspect]
     Indication: RETINAL OEDEMA
  3. LUCENTIS [Suspect]
     Indication: RETINAL NEOVASCULARISATION
  4. LUCENTIS [Suspect]
     Indication: RETINITIS HISTOPLASMA
  5. LUCENTIS [Suspect]
     Indication: PRESUMED OCULAR HISTOPLASMOSIS SYNDROME
  6. ALCAINE [Concomitant]
  7. BETADINE [Concomitant]

REACTIONS (3)
  - Head injury [Unknown]
  - Vitreous floaters [Unknown]
  - Slow speech [Unknown]
